FAERS Safety Report 16504255 (Version 1)
Quarter: 2019Q3

REPORT INFORMATION
  Report Type: Spontaneous
  Country: US (occurrence: US)
  Receive Date: 20190701
  Receipt Date: 20190701
  Transmission Date: 20191004
  Serious: No
  Sender: FDA-Public Use
  Company Number: US-SANOFI-AVENTIS-2012SA090982

PATIENT
  Age: 65 Year
  Sex: Female

DRUGS (3)
  1. LANTUS [Suspect]
     Active Substance: INSULIN GLARGINE
     Dosage: 17 U, BID (IN MORNING AND EVENING)
     Route: 065
  2. LANTUS [Suspect]
     Active Substance: INSULIN GLARGINE
     Dosage: 37 U, BID (IN MORNING AND EVENING)
     Route: 065
  3. LANTUS [Suspect]
     Active Substance: INSULIN GLARGINE
     Indication: TYPE 2 DIABETES MELLITUS
     Dosage: 90 DF,QD
     Route: 065

REACTIONS (5)
  - Injection site haemorrhage [Unknown]
  - Product dose omission [Unknown]
  - Glycosylated haemoglobin increased [Unknown]
  - Product storage error [Unknown]
  - Inappropriate schedule of product administration [Unknown]
